FAERS Safety Report 7347345-3 (Version None)
Quarter: 2011Q1

REPORT INFORMATION
  Report Type: 
  Country: None (occurrence: None)
  Receive Date: 20110311
  Receipt Date: 20110302
  Transmission Date: 20110831
  Serious: Yes (Other)
  Sender: FDA-Public Use
  Company Number: DE-ELI_LILLY_AND_COMPANY-DE201012001205

PATIENT
  Age: 53 Year
  Sex: Male
  Weight: 72 kg

DRUGS (9)
  1. CYMBALTA [Suspect]
     Indication: PAIN
     Dosage: 30 MG, UNK
     Route: 048
     Dates: start: 20101122
  2. MEROPENEM [Concomitant]
  3. CYMBALTA [Suspect]
     Dosage: 60 MG, UNK
     Route: 048
     Dates: start: 20101122
  4. CHEMOTHERAPEUTICS [Concomitant]
  5. ARCOXIA [Concomitant]
  6. VANCOMYCIN [Concomitant]
  7. HYDROMORPHONE HCL [Concomitant]
  8. TYGACIL [Concomitant]
  9. LYRICA [Concomitant]

REACTIONS (6)
  - BLOOD BILIRUBIN ABNORMAL [None]
  - BLOOD ALKALINE PHOSPHATASE INCREASED [None]
  - ACTIVATED PARTIAL THROMBOPLASTIN TIME PROLONGED [None]
  - ALANINE AMINOTRANSFERASE INCREASED [None]
  - GAMMA-GLUTAMYLTRANSFERASE INCREASED [None]
  - ASPARTATE AMINOTRANSFERASE INCREASED [None]
